FAERS Safety Report 6652516-5 (Version None)
Quarter: 2010Q1

REPORT INFORMATION
  Report Type: 
  Country: None (occurrence: None)
  Receive Date: 20100325
  Receipt Date: 20100325
  Transmission Date: 20100710
  Serious: No
  Sender: FDA-Public Use
  Company Number: None

PATIENT
  Age: 52 Year
  Sex: Male
  Weight: 103 kg

DRUGS (2)
  1. CHANTIX [Suspect]
     Indication: HYPERLIPIDAEMIA
     Dates: start: 20090519, end: 20090915
  2. CHANTIX [Suspect]
     Indication: SMOKING CESSATION THERAPY
     Dates: start: 20090519, end: 20090915

REACTIONS (1)
  - MOOD SWINGS [None]
